FAERS Safety Report 8874038 (Version 1)
Quarter: 2012Q4

REPORT INFORMATION
  Report Type: 
  Country: GB (occurrence: GB)
  Receive Date: 20121023
  Receipt Date: 20121023
  Transmission Date: 20130627
  Serious: Yes (Hospitalization)
  Sender: FDA-Public Use
  Company Number: PHHY2012GB092294

PATIENT
  Age: 43 Year
  Sex: Female

DRUGS (5)
  1. DILTIAZEM [Suspect]
     Dosage: 3360 mg, UNK
  2. IRBESARTAN [Suspect]
     Dosage: 1800 mg, UNK
  3. GABAPENTIN [Suspect]
     Dosage: 1800 mg, UNK
  4. CITALOPRAM [Suspect]
     Dosage: 560 mg, UNK
  5. DIAZEPAM [Suspect]
     Dosage: 115 mg, UNK

REACTIONS (9)
  - Atrioventricular block complete [Recovered/Resolved]
  - Pulmonary oedema [Recovered/Resolved]
  - Renal impairment [Recovering/Resolving]
  - Hypoxia [Recovered/Resolved]
  - Hypotension [Recovered/Resolved]
  - Bradycardia [Recovered/Resolved]
  - Left ventricular failure [Recovering/Resolving]
  - Anuria [Recovered/Resolved]
  - Intentional overdose [Unknown]
